FAERS Safety Report 17991563 (Version 5)
Quarter: 2020Q3

REPORT INFORMATION
  Report Type: Report from Study
  Country: US (occurrence: US)
  Receive Date: 20200707
  Receipt Date: 20200917
  Transmission Date: 20201103
  Serious: No
  Sender: FDA-Public Use
  Company Number: NVSC2020US189667

PATIENT
  Sex: Male

DRUGS (1)
  1. COSENTYX [Suspect]
     Active Substance: SECUKINUMAB
     Indication: ANKYLOSING SPONDYLITIS
     Dosage: 150 MG, UNKNOWN, BENEATH THE SKIN VIA INJECTION
     Route: 058
     Dates: start: 20200610

REACTIONS (5)
  - Alopecia [Unknown]
  - Pain [Unknown]
  - Drug ineffective [Unknown]
  - Arthropathy [Unknown]
  - Foot deformity [Unknown]
